FAERS Safety Report 22070158 (Version 1)
Quarter: 2023Q1

REPORT INFORMATION
  Report Type: Spontaneous
  Country: US (occurrence: US)
  Receive Date: 20230307
  Receipt Date: 20230307
  Transmission Date: 20230418
  Serious: No
  Sender: FDA-Public Use
  Company Number: US-ELI_LILLY_AND_COMPANY-US202205012012

PATIENT
  Sex: Female
  Weight: 88.435 kg

DRUGS (6)
  1. ADCIRCA [Suspect]
     Active Substance: TADALAFIL
     Indication: Pulmonary arterial hypertension
     Dosage: UNK UNK, UNKNOWN
     Route: 065
  2. TADALAFIL [Suspect]
     Active Substance: TADALAFIL
     Indication: Pulmonary arterial hypertension
     Dosage: UNK UNK, UNKNOWN
     Route: 065
  3. ORENITRAM [Suspect]
     Active Substance: TREPROSTINIL
     Indication: Pulmonary arterial hypertension
     Dosage: 4 MG, TID (2.5MG, 0.25MG, 1.0MG)
     Route: 048
     Dates: start: 20220323
  4. ORENITRAM [Suspect]
     Active Substance: TREPROSTINIL
     Dosage: 4 MG, TID (2.5MG, 0.25MG, 1.0MG)
     Route: 048
     Dates: start: 20220323
  5. ORENITRAM [Suspect]
     Active Substance: TREPROSTINIL
     Dosage: 4 MG, TID (2.5MG, 0.25MG, 1.0MG)
     Route: 048
     Dates: start: 20220323
  6. ORENITRAM [Suspect]
     Active Substance: TREPROSTINIL
     Dosage: 4 MG, TID (2.5MG, 0.25MG, 1.0MG)
     Route: 048
     Dates: start: 20220323

REACTIONS (3)
  - Seasonal allergy [Unknown]
  - Drug hypersensitivity [Unknown]
  - Sinusitis [Unknown]
